FAERS Safety Report 19659537 (Version 2)
Quarter: 2021Q3

REPORT INFORMATION
  Report Type: Report from Study
  Country: None (occurrence: US)
  Receive Date: 20210805
  Receipt Date: 20210903
  Transmission Date: 20211014
  Serious: Yes (Other)
  Sender: FDA-Public Use
  Company Number: US-ABBVIE-21K-163-3798057-00

PATIENT
  Sex: Female

DRUGS (4)
  1. MODERNA COVID?19 VACCINE [Concomitant]
     Active Substance: CX-024414
     Indication: COVID-19 IMMUNISATION
     Route: 030
     Dates: start: 20210215, end: 20210215
  2. MODERNA COVID?19 VACCINE [Concomitant]
     Active Substance: CX-024414
     Route: 030
     Dates: start: 20210315, end: 20210315
  3. RINVOQ [Suspect]
     Active Substance: UPADACITINIB
     Indication: RHEUMATOID ARTHRITIS
     Route: 048
     Dates: end: 202012
  4. RINVOQ [Suspect]
     Active Substance: UPADACITINIB
     Route: 048
     Dates: start: 202102

REACTIONS (9)
  - Joint swelling [Not Recovered/Not Resolved]
  - Device related infection [Unknown]
  - Joint effusion [Not Recovered/Not Resolved]
  - Blister [Not Recovered/Not Resolved]
  - Joint stiffness [Not Recovered/Not Resolved]
  - Blood cholesterol increased [Unknown]
  - Limb injury [Recovered/Resolved]
  - Pain of skin [Unknown]
  - Therapeutic product effect decreased [Not Recovered/Not Resolved]

NARRATIVE: CASE EVENT DATE: 2020
